FAERS Safety Report 9284624 (Version 2)
Quarter: 2013Q2

REPORT INFORMATION
  Report Type: Spontaneous
  Country: GB (occurrence: GB)
  Receive Date: 20130513
  Receipt Date: 20130621
  Transmission Date: 20140414
  Serious: Yes (Other)
  Sender: FDA-Public Use
  Company Number: GB-AMGEN-GBRSP2013032902

PATIENT
  Age: 49 Year
  Sex: Male
  Weight: 87 kg

DRUGS (6)
  1. ENBREL [Suspect]
     Indication: ANKYLOSING SPONDYLITIS
     Dosage: 50 MG, WEEKLY
     Route: 058
     Dates: start: 20110706
  2. LISINOPRIL [Concomitant]
     Indication: HYPERTENSION
     Dosage: 2.5 MG, UNK
     Route: 048
     Dates: start: 20110802
  3. METFORMIN [Concomitant]
     Indication: DIABETES MELLITUS
     Dosage: 1 G, UNK
     Route: 048
     Dates: start: 20110802
  4. PIOGLITAZONE [Concomitant]
     Indication: DIABETES MELLITUS
     Dosage: 15 MG, UNK
     Route: 048
     Dates: start: 20110802
  5. SIMVASTATIN [Concomitant]
     Indication: DIABETES MELLITUS
     Dosage: 20 MG, UNK
     Route: 048
     Dates: start: 20110802
  6. NAPROXEN [Concomitant]
     Indication: ANKYLOSING SPONDYLITIS
     Dosage: 500 MG, UNK
     Route: 048
     Dates: start: 20130123

REACTIONS (1)
  - Tooth infection [Unknown]
